FAERS Safety Report 22150616 (Version 1)
Quarter: 2023Q1

REPORT INFORMATION
  Report Type: Spontaneous
  Country: NL (occurrence: NL)
  Receive Date: 20230329
  Receipt Date: 20230329
  Transmission Date: 20230418
  Serious: Yes (Other)
  Sender: FDA-Public Use
  Company Number: NL-MLMSERVICE-20230317-4170022-1

PATIENT
  Sex: Male

DRUGS (2)
  1. VENLAFAXINE [Suspect]
     Active Substance: VENLAFAXINE HYDROCHLORIDE
     Indication: Depressive symptom
     Dosage: 37.5 MILLIGRAM
     Route: 065
     Dates: start: 2008, end: 2008
  2. VENLAFAXINE [Suspect]
     Active Substance: VENLAFAXINE HYDROCHLORIDE
     Dosage: 75 MILLIGRAM
     Route: 065
     Dates: end: 2008

REACTIONS (3)
  - Urinary incontinence [Unknown]
  - Hypertonic bladder [Unknown]
  - Sexual dysfunction [Unknown]
